FAERS Safety Report 5209482-9 (Version None)
Quarter: 2006Q4

REPORT INFORMATION
  Report Type: 
  Country: None (occurrence: None)
  Receive Date: 20061101
  Receipt Date: 20060613
  Transmission Date: 20070319
  Serious: No
  Sender: FDA-Public Use
  Company Number: 2006PV015624

PATIENT
  Age: 40 Year
  Sex: Female

DRUGS (2)
  1. SYMLIN [Suspect]
     Indication: DIABETES MELLITUS NON-INSULIN-DEPENDENT
     Dosage: SC
     Route: 058
     Dates: start: 20060401
  2. NPH INSULIN [Concomitant]

REACTIONS (3)
  - ANOREXIA [None]
  - BLOOD GLUCOSE INCREASED [None]
  - NAUSEA [None]
